FAERS Safety Report 9832872 (Version 1)
Quarter: 2014Q1

REPORT INFORMATION
  Report Type: Spontaneous
  Country: BR (occurrence: BR)
  Receive Date: 20140121
  Receipt Date: 20140121
  Transmission Date: 20141002
  Serious: Yes (Hospitalization)
  Sender: FDA-Public Use
  Company Number: BR-PFIZER INC-2014014054

PATIENT
  Age: 63 Year
  Sex: Male

DRUGS (3)
  1. SUTENT [Suspect]
     Indication: RENAL CELL CARCINOMA
     Dosage: 50 MG, CYCLIC (4 PER 2)
     Route: 048
     Dates: start: 20130906
  2. MAREVAN [Interacting]
  3. DIPYRONE [Concomitant]
     Dosage: UNK

REACTIONS (6)
  - Drug interaction [Recovering/Resolving]
  - Nausea [Unknown]
  - Decreased appetite [Unknown]
  - Limb discomfort [Unknown]
  - Disease progression [Not Recovered/Not Resolved]
  - Renal cell carcinoma [Not Recovered/Not Resolved]
